FAERS Safety Report 5300391-3 (Version None)
Quarter: 2007Q2

REPORT INFORMATION
  Report Type: 
  Country: None (occurrence: None)
  Receive Date: 20070413
  Receipt Date: 20070413
  Transmission Date: 20071010
  Serious: No
  Sender: FDA-Public Use
  Company Number: None

PATIENT
  Age: 26 Year
  Sex: Male
  Weight: 92.9874 kg

DRUGS (3)
  1. PRINIVIL [Suspect]
     Indication: HYPERTENSION
     Dosage: 20  QD  PO
     Route: 048
     Dates: start: 20070301, end: 20070304
  2. BENICAR [Suspect]
     Indication: HYPERTENSION
     Dosage: QD  PO
     Route: 048
     Dates: start: 20070405, end: 20070412
  3. MULTI-VITAMIN [Concomitant]

REACTIONS (2)
  - ERECTILE DYSFUNCTION [None]
  - LIBIDO DECREASED [None]
